FAERS Safety Report 9007777 (Version 1)
Quarter: 2013Q1

REPORT INFORMATION
  Report Type: Spontaneous
  Country: US (occurrence: US)
  Receive Date: 20130111
  Receipt Date: 20130111
  Transmission Date: 20140127
  Serious: Yes (Other)
  Sender: FDA-Public Use
  Company Number: US-009507513-0907USA03776

PATIENT
  Age: 8 Year
  Sex: Male
  Weight: 30.39 kg

DRUGS (1)
  1. SINGULAIR [Suspect]
     Indication: ASTHMA
     Dosage: 5 MG, QD
     Route: 048
     Dates: start: 20080903, end: 20081118

REACTIONS (2)
  - Abnormal behaviour [Unknown]
  - Headache [Unknown]
